FAERS Safety Report 10589531 (Version 1)
Quarter: 2014Q4

REPORT INFORMATION
  Report Type: Spontaneous
  Country: US (occurrence: None)
  Receive Date: 20141114
  Receipt Date: 20141114
  Transmission Date: 20150529
  Serious: No
  Sender: FDA-Public Use
  Company Number: PR 1958

PATIENT
  Age: 58 Year
  Sex: Male

DRUGS (1)
  1. MOISTURIZING LUBRICANT EYE DROPS [Suspect]
     Active Substance: CARBOXYMETHYLCELLULOSE SODIUM
     Dosage: IN THE EYES
     Route: 061
     Dates: start: 20141014

REACTIONS (2)
  - Product physical issue [None]
  - Eye infection [None]

NARRATIVE: CASE EVENT DATE: 20141014
